FAERS Safety Report 18724298 (Version 2)
Quarter: 2021Q1

REPORT INFORMATION
  Report Type: Spontaneous
  Country: US (occurrence: US)
  Receive Date: 20210111
  Receipt Date: 20210226
  Transmission Date: 20210419
  Serious: Yes (Other)
  Sender: FDA-Public Use
  Company Number: US-BAYER-2021-017739

PATIENT
  Age: 41 Year
  Sex: Female
  Weight: 90.7 kg

DRUGS (2)
  1. MIRENA [Suspect]
     Active Substance: LEVONORGESTREL
     Indication: CONTRACEPTION
     Dosage: 20  ?G PER DAY CONT`
     Route: 015
     Dates: start: 20200205, end: 20201116
  2. MIRENA [Suspect]
     Active Substance: LEVONORGESTREL
     Indication: MENORRHAGIA

REACTIONS (4)
  - Medical device entrapment [None]
  - Genital haemorrhage [None]
  - Embedded device [Recovering/Resolving]
  - Abdominal pain [None]

NARRATIVE: CASE EVENT DATE: 202011
